FAERS Safety Report 6966801-0 (Version None)
Quarter: 2010Q3

REPORT INFORMATION
  Report Type: 
  Country: None (occurrence: None)
  Receive Date: 20100906
  Receipt Date: 20100823
  Transmission Date: 20110219
  Serious: Yes (Other)
  Sender: FDA-Public Use
  Company Number: PHHY2010RU56072

PATIENT
  Age: 20 Year
  Sex: Female

DRUGS (5)
  1. GLEEVEC [Suspect]
     Indication: CHRONIC MYELOID LEUKAEMIA
     Dosage: 400 MG, QD
     Route: 048
     Dates: start: 20011101
  2. GLEEVEC [Suspect]
     Dosage: 600 MG, QD
     Route: 048
  3. GLEEVEC [Suspect]
     Dosage: 800 MG, QD
     Route: 048
     Dates: end: 20070901
  4. METHYLPREDNISOLONE [Concomitant]
     Dosage: 8 MG, QD
     Dates: start: 20070501
  5. DASATINIB [Concomitant]
     Dosage: UNK
     Dates: start: 20080201

REACTIONS (17)
  - ABDOMINAL DISCOMFORT [None]
  - ALVEOLITIS ALLERGIC [None]
  - ASTHENIA [None]
  - BRONCHOPULMONARY ASPERGILLOSIS [None]
  - CYTOMEGALOVIRUS INFECTION [None]
  - DYSPNOEA EXERTIONAL [None]
  - FATIGUE [None]
  - GENERAL PHYSICAL HEALTH DETERIORATION [None]
  - INTERSTITIAL LUNG DISEASE [None]
  - LUNG INFILTRATION [None]
  - PNEUMONIA [None]
  - PRODUCTIVE COUGH [None]
  - PRURITUS [None]
  - PULMONARY TUBERCULOSIS [None]
  - PYREXIA [None]
  - TACHYCARDIA [None]
  - THROMBOCYTOSIS [None]
